FAERS Safety Report 19032181 (Version 1)
Quarter: 2021Q1

REPORT INFORMATION
  Report Type: Report from Study
  Country: RO (occurrence: RO)
  Receive Date: 20210319
  Receipt Date: 20210319
  Transmission Date: 20210420
  Serious: Yes (Other)
  Sender: FDA-Public Use
  Company Number: NVSC2021RO057148

PATIENT
  Age: 76 Year
  Sex: Female

DRUGS (1)
  1. EXELON [Suspect]
     Active Substance: RIVASTIGMINE TARTRATE
     Indication: PRODUCT USED FOR UNKNOWN INDICATION
     Dosage: 4.6 MG (PATCH 5 (CM2), 9 MG RIVASTIGMINE BASE)
     Route: 062
     Dates: end: 202102

REACTIONS (7)
  - Insomnia [Unknown]
  - Fall [Unknown]
  - Cardiac fibrillation [Unknown]
  - Hypotension [Unknown]
  - Ill-defined disorder [Unknown]
  - Nausea [Unknown]
  - Drug intolerance [Unknown]
